FAERS Safety Report 8408404-7 (Version None)
Quarter: 2012Q2

REPORT INFORMATION
  Report Type: 
  Country: None (occurrence: None)
  Receive Date: 20120604
  Receipt Date: 20120521
  Transmission Date: 20120825
  Serious: Yes (Other)
  Sender: FDA-Public Use
  Company Number: PHHY2012BR016730

PATIENT
  Sex: Female

DRUGS (6)
  1. EXFORGE HCT [Suspect]
     Indication: HYPERTENSION
     Dosage: 1 DF,(160 MG VAL/5 MG AMLO/12.5 MG HCT) DAILY
     Route: 048
     Dates: start: 20110601
  2. EXFORGE [Suspect]
     Indication: HYPERTENSION
     Dosage: 1 DF (160 MG VAL/ 5 MG AMLO)DAILY
     Route: 048
     Dates: start: 20070601
  3. DIOVAN HCT [Suspect]
     Indication: HYPERTENSION
     Dosage: 1 DF, (80 MG VAL/ 12.5 MG HCT) DAILY
     Route: 048
     Dates: start: 20020101
  4. DIOVAN HCT [Suspect]
     Dosage: 1 DF (160 MG VAL/ 12.5 MG HCT) DAILY
     Route: 048
     Dates: start: 20050101
  5. OLCADIL [Concomitant]
     Indication: SLEEP DISORDER
     Dosage: 1 DF, (IF NECESSARY)
     Route: 048
  6. LEXOTAN [Concomitant]
     Indication: SLEEP DISORDER
     Dosage: 1 DF (IF NECESSARY)
     Route: 048

REACTIONS (3)
  - GLAUCOMA [None]
  - BLOOD PRESSURE FLUCTUATION [None]
  - INTRAOCULAR PRESSURE TEST ABNORMAL [None]
